FAERS Safety Report 5865169-0 (Version None)
Quarter: 2008Q3

REPORT INFORMATION
  Report Type: 
  Country: None (occurrence: None)
  Receive Date: 20080829
  Receipt Date: 20080822
  Transmission Date: 20090109
  Serious: Yes (Hospitalization)
  Sender: FDA-Public Use
  Company Number: A0745184A

PATIENT
  Sex: Female
  Weight: 122.7 kg

DRUGS (9)
  1. AVANDIA [Suspect]
     Dosage: 4MG PER DAY
     Route: 048
     Dates: start: 19991201, end: 20071101
  2. GLUCOPHAGE [Concomitant]
  3. LIPITOR [Concomitant]
     Dates: start: 20000101
  4. CELEBREX [Concomitant]
     Dates: start: 20060101
  5. ZOCOR [Concomitant]
     Dates: start: 20000101
  6. PROZAC [Concomitant]
     Dates: start: 20000101
  7. PAXIL [Concomitant]
     Dates: start: 20000101
  8. INSULIN [Concomitant]
  9. SINGULAIR [Concomitant]

REACTIONS (3)
  - CARDIAC FAILURE CONGESTIVE [None]
  - CEREBROVASCULAR ACCIDENT [None]
  - MYOCARDIAL INFARCTION [None]
